FAERS Safety Report 23304632 (Version 1)
Quarter: 2023Q4

REPORT INFORMATION
  Report Type: Spontaneous
  Country: FR (occurrence: FR)
  Receive Date: 20231218
  Receipt Date: 20231218
  Transmission Date: 20240109
  Serious: Yes (Hospitalization)
  Sender: FDA-Public Use
  Company Number: None

PATIENT
  Age: 66 Year
  Weight: 54 kg

DRUGS (9)
  1. COTRIMOXAZOLE [Suspect]
     Active Substance: SULFAMETHOXAZOLE\TRIMETHOPRIM
     Indication: Infection prophylaxis
     Dosage: FORM STRENGTH: 800 MG/160 MG
     Route: 048
     Dates: start: 20231002, end: 20231002
  2. CALCIDOSE [Concomitant]
  3. QUESTRAN [Suspect]
     Active Substance: CHOLESTYRAMINE
     Indication: Skin ulcer
     Dosage: 4G, ORAL POWDER IN SACHET
     Route: 003
     Dates: start: 20230930, end: 20231005
  4. PANTOPRAZOLE [Concomitant]
     Active Substance: PANTOPRAZOLE
  5. REPAGLINIDE [Concomitant]
     Active Substance: REPAGLINIDE
  6. ELIQUIS [Concomitant]
     Active Substance: APIXABAN
  7. FUNGIZONE [Suspect]
     Active Substance: AMPHOTERICIN B
     Indication: Viral infection
     Dosage: CASE, 10 PERCENT, ORAL SUSPENSION
     Route: 048
     Dates: start: 20230923, end: 20231003
  8. PREDNISONE [Concomitant]
     Active Substance: PREDNISONE
  9. VALACYCLOVIR [Suspect]
     Active Substance: VALACYCLOVIR HYDROCHLORIDE
     Indication: Viral infection
     Route: 048
     Dates: start: 20230923, end: 20231002

REACTIONS (1)
  - Dermatitis [Recovered/Resolved]

NARRATIVE: CASE EVENT DATE: 20231003
